FAERS Safety Report 14076473 (Version 2)
Quarter: 2017Q4

REPORT INFORMATION
  Report Type: Spontaneous
  Country: AT (occurrence: AT)
  Receive Date: 20171011
  Receipt Date: 20171031
  Transmission Date: 20180321
  Serious: Yes (Other)
  Sender: FDA-Public Use
  Company Number: AT-BAYER-2017-190460

PATIENT
  Age: 44 Year
  Sex: Female

DRUGS (3)
  1. AMLODIPIN [Concomitant]
     Active Substance: AMLODIPINE BESYLATE
     Dosage: 5 MG, QD
  2. MIRENA [Suspect]
     Active Substance: LEVONORGESTREL
     Indication: HYPERTENSION
     Dosage: 20 MCG/24HR, CONT
     Route: 015
     Dates: start: 20170807
  3. MIRENA [Suspect]
     Active Substance: LEVONORGESTREL
     Indication: OBESITY

REACTIONS (3)
  - Off label use [None]
  - Arrhythmia [None]
  - Product use in unapproved indication [None]

NARRATIVE: CASE EVENT DATE: 20170815
